FAERS Safety Report 20132707 (Version 2)
Quarter: 2021Q4

REPORT INFORMATION
  Report Type: Spontaneous
  Country: PT (occurrence: PT)
  Receive Date: 20211130
  Receipt Date: 20211202
  Transmission Date: 20220303
  Serious: Yes (Other)
  Sender: FDA-Public Use
  Company Number: PT-CELLTRION INC.-2021PT015921

PATIENT

DRUGS (29)
  1. RITUXIMAB [Suspect]
     Active Substance: RITUXIMAB
     Indication: Diffuse large B-cell lymphoma
     Dosage: R-CVP (FIRST CYCLE)
  2. RITUXIMAB [Suspect]
     Active Substance: RITUXIMAB
     Dosage: R-CHOP (FIRST CYCLE)
  3. RITUXIMAB [Suspect]
     Active Substance: RITUXIMAB
     Dosage: R-CHOP (SECOND CYCLE)
  4. RITUXIMAB [Suspect]
     Active Substance: RITUXIMAB
     Dosage: R-CHOP (THIRD CYCLE)
  5. RITUXIMAB [Suspect]
     Active Substance: RITUXIMAB
     Dosage: R-CHOP (FOURTH CYCLE)
  6. RITUXIMAB [Suspect]
     Active Substance: RITUXIMAB
     Dosage: R-CHOP (FIFTH CYCLE)
  7. RITUXIMAB [Suspect]
     Active Substance: RITUXIMAB
     Dosage: R-CHOP (SIXTH CYCLE)
  8. CYCLOPHOSPHAMIDE [Suspect]
     Active Substance: CYCLOPHOSPHAMIDE
     Indication: Diffuse large B-cell lymphoma
     Dosage: R-CVP (FIRST CYCLE)
  9. VINCRISTINE SULFATE [Suspect]
     Active Substance: VINCRISTINE SULFATE
     Indication: Diffuse large B-cell lymphoma
     Dosage: R-CVP (FIRST CYCLE)
  10. PREDNISONE [Suspect]
     Active Substance: PREDNISONE
     Indication: Diffuse large B-cell lymphoma
     Dosage: R-CVP (FIRST CYCLE)
  11. DOXORUBICIN HYDROCHLORIDE [Suspect]
     Active Substance: DOXORUBICIN HYDROCHLORIDE
     Indication: Diffuse large B-cell lymphoma
     Dosage: R-CHOP (FIRST CYCLE), 50 % REDUCTION IN DOXORUBICIN AND VINCRISTINE
  12. DOXORUBICIN HYDROCHLORIDE [Suspect]
     Active Substance: DOXORUBICIN HYDROCHLORIDE
     Dosage: R-CHOP (SECOND CYCLE) 100% DOXORUBICIN, 50% VINCRISTINE
  13. DOXORUBICIN HYDROCHLORIDE [Suspect]
     Active Substance: DOXORUBICIN HYDROCHLORIDE
     Dosage: R-CHOP (THIRD CYCLE), FULL DOSES
  14. DOXORUBICIN HYDROCHLORIDE [Suspect]
     Active Substance: DOXORUBICIN HYDROCHLORIDE
     Dosage: R-CHOP (FOURTH CYCLE), FULL DOSES
  15. DOXORUBICIN HYDROCHLORIDE [Suspect]
     Active Substance: DOXORUBICIN HYDROCHLORIDE
     Dosage: R-CHOP (FIFTH CYCLE), FULL DOSES
  16. DOXORUBICIN HYDROCHLORIDE [Suspect]
     Active Substance: DOXORUBICIN HYDROCHLORIDE
     Dosage: R-CHOP (SIXTH CYCLE), FULL DOSES
  17. VINCRISTINE [Suspect]
     Active Substance: VINCRISTINE
     Indication: Diffuse large B-cell lymphoma
     Dosage: R-CHOP (FIRST CYCLE), 50 % REDUCTION IN DOXORUBICIN AND VINCRISTINE
  18. VINCRISTINE [Suspect]
     Active Substance: VINCRISTINE
     Dosage: R-CHOP (SECOND CYCLE) 100% DOXORUBICIN, 50% VINCRISTINE
  19. VINCRISTINE [Suspect]
     Active Substance: VINCRISTINE
     Dosage: R-CHOP (THIRD CYCLE), FULL DOSES
  20. VINCRISTINE [Suspect]
     Active Substance: VINCRISTINE
     Dosage: R-CHOP (FOURTH CYCLE), FULL DOSES
  21. VINCRISTINE [Suspect]
     Active Substance: VINCRISTINE
     Dosage: R-CHOP (FIFTH CYCLE)
  22. VINCRISTINE [Suspect]
     Active Substance: VINCRISTINE
     Dosage: R-CHOP (SIXTH CYCLE)
  23. PREDNISOLONE [Suspect]
     Active Substance: PREDNISOLONE
     Indication: Diffuse large B-cell lymphoma
     Dosage: 60 MG/DAY FOR EIGHT DAYS
  24. PREDNISOLONE [Suspect]
     Active Substance: PREDNISOLONE
     Dosage: R-CHOP (FIRST CYCLE)
  25. PREDNISOLONE [Suspect]
     Active Substance: PREDNISOLONE
     Dosage: R-CHOP (SECOND CYCLE)
  26. PREDNISOLONE [Suspect]
     Active Substance: PREDNISOLONE
     Dosage: R-CHOP (THIRD CYCLE)
  27. PREDNISOLONE [Suspect]
     Active Substance: PREDNISOLONE
     Dosage: R-CHOP (FOURTH CYCLE)
  28. PREDNISOLONE [Suspect]
     Active Substance: PREDNISOLONE
     Dosage: R-CHOP (FIFTH CYCLE)
  29. PREDNISOLONE [Suspect]
     Active Substance: PREDNISOLONE
     Dosage: R-CHOP (SIXTH CYCLE)

REACTIONS (6)
  - Diffuse large B-cell lymphoma [Unknown]
  - Disease progression [Unknown]
  - Neuropathy peripheral [Unknown]
  - Leukopenia [Unknown]
  - Thrombocytopenia [Unknown]
  - Anaemia [Unknown]
